FAERS Safety Report 4964412-X (Version None)
Quarter: 2006Q2

REPORT INFORMATION
  Report Type: 
  Country: None (occurrence: None)
  Receive Date: 20060405
  Receipt Date: 20060327
  Transmission Date: 20061013
  Serious: Yes (Hospitalization)
  Sender: FDA-Public Use
  Company Number: DL2006161

PATIENT
  Age: 20 Year
  Sex: Female

DRUGS (2)
  1. MIFEPRISTONE TABLETS, 200 MG (DANCO LABS) [Suspect]
     Indication: ABORTION INDUCED
     Dosage: 200 MG, ORAL
     Route: 048
     Dates: start: 20060103
  2. MISOPROSTOL [Suspect]
     Dosage: 800 MCG, VAGINAL
     Dates: start: 20060104

REACTIONS (6)
  - CHILLS [None]
  - INTRA-UTERINE DEATH [None]
  - PAIN [None]
  - PYREXIA [None]
  - RETAINED PRODUCTS OF CONCEPTION [None]
  - URINARY TRACT INFECTION [None]
